FAERS Safety Report 24692718 (Version 3)
Quarter: 2024Q4

REPORT INFORMATION
  Report Type: Spontaneous
  Country: US (occurrence: US)
  Receive Date: 20241203
  Receipt Date: 20241227
  Transmission Date: 20250114
  Serious: No
  Sender: PFIZER
  Company Number: US-PFIZER INC-PV202400156865

PATIENT
  Age: 68 Year
  Sex: Female
  Weight: 74.6 kg

DRUGS (1)
  1. IBRANCE [Suspect]
     Active Substance: PALBOCICLIB
     Indication: Hormone receptor positive breast cancer
     Dosage: 125 MG, CYCLIC (TAKE 1 TABLET DAILY WITH FOOD TAKE FOR 21 DAYS, THEN OFF FOR 7 DAYS)
     Route: 048

REACTIONS (1)
  - Neoplasm progression [Unknown]
